FAERS Safety Report 9454085 (Version 1)
Quarter: 2013Q3

REPORT INFORMATION
  Report Type: Spontaneous
  Country: US (occurrence: None)
  Receive Date: 20130809
  Receipt Date: 20130809
  Transmission Date: 20140515
  Serious: Yes (Disabling, Other)
  Sender: FDA-Public Use
  Company Number: None

PATIENT
  Age: 33 Year
  Sex: Female
  Weight: 78.47 kg

DRUGS (2)
  1. VITAMIN B COMPLEX [Suspect]
     Dosage: 2 PILLS THREE TIMES DAILY TAKEN BY MOUTH
     Route: 048
  2. VITAMIN C [Suspect]
     Route: 048

REACTIONS (6)
  - Arthralgia [None]
  - Myalgia [None]
  - Hair growth abnormal [None]
  - Dysphonia [None]
  - Affective disorder [None]
  - Product quality issue [None]
